FAERS Safety Report 9200234 (Version 1)
Quarter: 2013Q1

REPORT INFORMATION
  Report Type: Spontaneous
  Country: AU (occurrence: AU)
  Receive Date: 20130329
  Receipt Date: 20130329
  Transmission Date: 20140127
  Serious: Yes (Hospitalization, Other)
  Sender: FDA-Public Use
  Company Number: AU-B.I. PHARMACEUTICALS,INC./RIDGEFIELD-2013-AU-00356AU

PATIENT
  Sex: Female

DRUGS (4)
  1. PRADAXA [Suspect]
  2. WARFARIN [Suspect]
  3. ATIVAN [Suspect]
  4. VALIUM [Suspect]

REACTIONS (2)
  - Suicide attempt [Recovered/Resolved]
  - Joint injury [Recovered/Resolved]
